FAERS Safety Report 22135866 (Version 2)
Quarter: 2023Q2

REPORT INFORMATION
  Report Type: Spontaneous
  Country: FR (occurrence: FR)
  Receive Date: 20230324
  Receipt Date: 20230403
  Transmission Date: 20230721
  Serious: Yes (Death, Other)
  Sender: FDA-Public Use
  Company Number: FR-GSKCCFEMEA-Case-01694912_AE-68783

PATIENT

DRUGS (1)
  1. SERETIDE [Suspect]
     Active Substance: FLUTICASONE PROPIONATE\SALMETEROL XINAFOATE
     Indication: Asthma
     Dosage: 500 UG, BID
     Dates: start: 202012

REACTIONS (5)
  - Lymphoma [Fatal]
  - Fall [Fatal]
  - Gait inability [Fatal]
  - Hypoaesthesia [Fatal]
  - COVID-19 [Fatal]

NARRATIVE: CASE EVENT DATE: 20220201
